FAERS Safety Report 20108968 (Version 1)
Quarter: 2021Q4

REPORT INFORMATION
  Report Type: Spontaneous
  Country: DE (occurrence: DE)
  Receive Date: 20211124
  Receipt Date: 20211124
  Transmission Date: 20220303
  Serious: Yes (Other)
  Sender: FDA-Public Use
  Company Number: DE-ROCHE-2891427

PATIENT
  Age: 61 Year
  Sex: Male
  Weight: 90 kg

DRUGS (17)
  1. GABAPENTIN [Suspect]
     Active Substance: GABAPENTIN
     Indication: Product used for unknown indication
     Dosage: 200 MILLIGRAM
     Route: 065
     Dates: start: 20210519
  2. BENSERAZIDE\LEVODOPA [Suspect]
     Active Substance: BENSERAZIDE\LEVODOPA
     Indication: Restless legs syndrome
     Dosage: UNK UNK, PM, AT NIGHT
     Route: 048
     Dates: start: 202107
  3. DIMETHINDENE [Concomitant]
     Active Substance: DIMETHINDENE
     Dosage: UNK
  4. AERIUS (DESLORATADINE) [Concomitant]
     Active Substance: DESLORATADINE
     Dosage: 5 MILLIGRAM, DISCONTINUED DUE TO ALLERGY TEST ANTIBIOTICS (NOS)
     Dates: start: 20210830
  5. SILODOSIN [Concomitant]
     Active Substance: SILODOSIN
     Dosage: 4 MILLIGRAM, ON MONDAYS AND ON FRIDAYS
  6. MOVICOL                            /01749801/ [Concomitant]
     Dosage: UNK, EVERY 2-3 DAYS
  7. HERBALS [Concomitant]
     Active Substance: HERBALS
     Dosage: UNK
  8. PANTOZOL                           /01263204/ [Concomitant]
     Dosage: 40 MILLIGRAM, QD
  9. CAPROS AKUT [Concomitant]
     Dosage: 20 MILLIGRAM
  10. ASPIRIN [Concomitant]
     Active Substance: ASPIRIN
     Dosage: 100 MILLIGRAM, QD
  11. NALOXONE HYDROCHLORIDE\OXYCODONE HYDROCHLORIDE [Concomitant]
     Active Substance: NALOXONE HYDROCHLORIDE\OXYCODONE HYDROCHLORIDE
     Dosage: UNK UNK, TID, 20MG IN THE MORNING, 10MG AT NOON, 20MG IN THE EVENING
  12. L-THYROXIN                         /00068001/ [Concomitant]
     Dosage: 25 MICROGRAM
     Dates: start: 20210504
  13. CANDESARTAN [Concomitant]
     Active Substance: CANDESARTAN
     Dosage: 4 MILLIGRAM
     Dates: start: 20210527
  14. METAMIZOLE SODIUM [Concomitant]
     Active Substance: METAMIZOLE SODIUM
     Dosage: 500 MILLIGRAM, DISCONTINUED ON AN UNREPORTED DATE
  15. TESTOSTERONE [Concomitant]
     Active Substance: TESTOSTERONE
     Dosage: 1.25 MILLIGRAM
  16. BENFOTIAMINE [Concomitant]
     Active Substance: BENFOTIAMINE
     Dosage: 300 MILLIGRAM, QD
  17. SILDENAFIL [Concomitant]
     Active Substance: SILDENAFIL
     Dosage: 100 MILLIGRAM

REACTIONS (15)
  - Joint prosthesis user [Not Recovered/Not Resolved]
  - Infection [Not Recovered/Not Resolved]
  - Musculoskeletal stiffness [Unknown]
  - Blood pressure decreased [Unknown]
  - Sleep disorder [Unknown]
  - Hunger [Unknown]
  - Joint swelling [Unknown]
  - Dry mouth [Unknown]
  - Headache [Unknown]
  - Pain [Unknown]
  - Vomiting [Unknown]
  - Diarrhoea [Unknown]
  - Rash [Unknown]
  - Nausea [Unknown]
  - Fatigue [Unknown]
